FAERS Safety Report 5228842-3 (Version None)
Quarter: 2007Q1

REPORT INFORMATION
  Report Type: 
  Country: None (occurrence: None)
  Receive Date: 20070131
  Receipt Date: 20070124
  Transmission Date: 20070707
  Serious: Yes (Death)
  Sender: FDA-Public Use
  Company Number: 163-21880-07010296

PATIENT
  Sex: Male

DRUGS (1)
  1. REVLIMID [Suspect]
     Indication: MYELODYSPLASTIC SYNDROME
     Dosage: 5 MG, X 21 DAYS; OFF X7 DAYS, ORAL
     Route: 048
     Dates: start: 20060701, end: 20061201

REACTIONS (1)
  - DISEASE PROGRESSION [None]
